FAERS Safety Report 8489328-6 (Version None)
Quarter: 2012Q3

REPORT INFORMATION
  Report Type: 
  Country: None (occurrence: None)
  Receive Date: 20120705
  Receipt Date: 20120703
  Transmission Date: 20120928
  Serious: Yes (Other)
  Sender: FDA-Public Use
  Company Number: US-BAYER-2012-065781

PATIENT
  Sex: Female

DRUGS (1)
  1. GADAVIST [Suspect]
     Dosage: 5 ML, ONCE
     Dates: start: 20120702, end: 20120702

REACTIONS (3)
  - DYSPNOEA [None]
  - VOMITING PROJECTILE [None]
  - URTICARIA [None]
